FAERS Safety Report 12189085 (Version 1)
Quarter: 2016Q1

REPORT INFORMATION
  Report Type: Spontaneous
  Country: US (occurrence: US)
  Receive Date: 20160317
  Receipt Date: 20160317
  Transmission Date: 20160526
  Serious: Yes (Other)
  Sender: FDA-Public Use
  Company Number: US-PFIZER INC-2016139687

PATIENT
  Age: 4 Year
  Sex: Female
  Weight: 17.69 kg

DRUGS (1)
  1. CHILDRENS ROBITUSSIN COUGH AND COLD LONG-ACTING [Suspect]
     Active Substance: CHLORPHENIRAMINE MALEATE\DEXTROMETHORPHAN HYDROBROMIDE
     Indication: COUGH
     Dosage: UNK
     Dates: start: 20160301, end: 20160302

REACTIONS (11)
  - Blister [Recovering/Resolving]
  - Lip disorder [Recovering/Resolving]
  - Generalised erythema [Recovering/Resolving]
  - Drug administered to patient of inappropriate age [Unknown]
  - Swelling face [Recovering/Resolving]
  - Skin warm [Recovered/Resolved]
  - Urticaria [Unknown]
  - Lip swelling [Recovering/Resolving]
  - Hypersensitivity [Recovering/Resolving]
  - Pruritus [Recovering/Resolving]
  - Vomiting [Recovered/Resolved]

NARRATIVE: CASE EVENT DATE: 20160301
